FAERS Safety Report 20438267 (Version 3)
Quarter: 2022Q1

REPORT INFORMATION
  Report Type: Other
  Country: US (occurrence: None)
  Receive Date: 20220207
  Receipt Date: 20220222
  Transmission Date: 20220424
  Serious: Yes (Hospitalization)
  Sender: FDA-Public Use
  Company Number: US-ROCHE-3016883

PATIENT
  Sex: Female
  Weight: 55.388 kg

DRUGS (8)
  1. OCREVUS [Suspect]
     Active Substance: OCRELIZUMAB
     Indication: Primary progressive multiple sclerosis
     Route: 042
  2. VALIUM [Suspect]
     Active Substance: DIAZEPAM
     Indication: Product used for unknown indication
     Route: 065
  3. VALIUM [Suspect]
     Active Substance: DIAZEPAM
     Route: 065
  4. TIZANIDINE [Concomitant]
     Active Substance: TIZANIDINE
     Route: 048
  5. BACLOFEN [Concomitant]
     Active Substance: BACLOFEN
  6. GABAPENTIN [Concomitant]
     Active Substance: GABAPENTIN
  7. VENLAFAXINE [Concomitant]
     Active Substance: VENLAFAXINE HYDROCHLORIDE
  8. LYRICA [Concomitant]
     Active Substance: PREGABALIN

REACTIONS (6)
  - Arthritis [Not Recovered/Not Resolved]
  - Muscle spasms [Not Recovered/Not Resolved]
  - Neck pain [Not Recovered/Not Resolved]
  - Vertigo [Recovered/Resolved]
  - Somnolence [Unknown]
  - Fall [Unknown]
